FAERS Safety Report 9081246 (Version 1)
Quarter: 2013Q1

REPORT INFORMATION
  Report Type: Report from Study
  Country: US (occurrence: US)
  Receive Date: 20130130
  Receipt Date: 20130130
  Transmission Date: 20140127
  Serious: No
  Sender: FDA-Public Use
  Company Number: US-ABBOTT-12P-163-0955802-00

PATIENT
  Age: 57 Year
  Sex: Female

DRUGS (16)
  1. HUMIRA 40 MG/0.8 ML PEN [Suspect]
     Indication: PSORIATIC ARTHROPATHY
     Dates: start: 20110607
  2. SYNTHROID [Concomitant]
     Indication: THYROID DISORDER
     Route: 048
  3. TRICOR [Concomitant]
     Indication: BLOOD CHOLESTEROL
     Route: 048
  4. RESTASIS [Concomitant]
     Indication: DRY EYE
  5. LOTEMAX [Concomitant]
     Indication: DRY EYE
  6. FOLIC ACID [Concomitant]
     Indication: SUPPLEMENTATION THERAPY
     Route: 048
  7. MVI [Concomitant]
     Indication: SUPPLEMENTATION THERAPY
  8. FISH OIL [Concomitant]
     Indication: SUPPLEMENTATION THERAPY
  9. CALCIUM [Concomitant]
     Indication: SUPPLEMENTATION THERAPY
  10. VITAMIN D [Concomitant]
     Indication: SUPPLEMENTATION THERAPY
  11. CRANBERRY [Concomitant]
     Indication: SUPPLEMENTATION THERAPY
  12. ESTROVEN [Concomitant]
     Indication: SUPPLEMENTATION THERAPY
  13. METHOTREXATE [Concomitant]
     Dates: start: 201202
  14. NAPROXEN [Concomitant]
     Indication: PAIN
     Route: 048
     Dates: start: 201111
  15. NAPROXEN [Concomitant]
     Indication: SWELLING
  16. PEPCID AC [Concomitant]
     Indication: GASTRIC DISORDER
     Route: 048
     Dates: start: 201111

REACTIONS (2)
  - Injection site bruising [Recovered/Resolved]
  - Injection site bruising [Not Recovered/Not Resolved]
